FAERS Safety Report 6406789-4 (Version None)
Quarter: 2009Q4

REPORT INFORMATION
  Report Type: 
  Country: None (occurrence: None)
  Receive Date: 20091020
  Receipt Date: 20091007
  Transmission Date: 20100525
  Serious: Yes (Other)
  Sender: FDA-Public Use
  Company Number: US-PFIZER INC-2007055758

PATIENT
  Sex: Female
  Weight: 96.599 kg

DRUGS (8)
  1. CHANTIX [Suspect]
     Indication: SMOKING CESSATION THERAPY
     Dosage: UNK
  2. PREMPRO [Concomitant]
  3. TRAZODONE [Concomitant]
  4. ACETYLSALICYLIC ACID [Concomitant]
  5. REQUIP [Concomitant]
  6. DIGOXIN [Concomitant]
  7. ACTONEL [Concomitant]
  8. PLAVIX [Concomitant]
     Dosage: UNK

REACTIONS (7)
  - DECREASED APPETITE [None]
  - DIABETES MELLITUS [None]
  - FATIGUE [None]
  - HYPERSOMNIA [None]
  - HYPERTENSION [None]
  - OBESITY SURGERY [None]
  - STENT PLACEMENT [None]
